FAERS Safety Report 4504450-4 (Version None)
Quarter: 2004Q4

REPORT INFORMATION
  Report Type: 
  Country: None (occurrence: None)
  Receive Date: 20041116
  Receipt Date: 20041111
  Transmission Date: 20050328
  Serious: Yes (Other)
  Sender: FDA-Public Use
  Company Number: S04-USA-02060-01

PATIENT
  Age: 63 Year
  Sex: Female

DRUGS (4)
  1. LEVOTHROID [Suspect]
     Indication: HYPOTHYROIDISM
     Dosage: 88 MCG QD PO
     Route: 048
     Dates: start: 20031001
  2. CAPTOPRIL [Concomitant]
  3. ATENOLOL [Concomitant]
  4. DITROPAN [Concomitant]

REACTIONS (9)
  - CONSTIPATION [None]
  - DIABETES MELLITUS NON-INSULIN-DEPENDENT [None]
  - DIZZINESS [None]
  - DRY SKIN [None]
  - HYPERSENSITIVITY [None]
  - SKIN BLEEDING [None]
  - SKIN FISSURES [None]
  - TEMPERATURE INTOLERANCE [None]
  - VISUAL ACUITY REDUCED [None]
